FAERS Safety Report 5588237-X (Version None)
Quarter: 2008Q1

REPORT INFORMATION
  Report Type: 
  Country: None (occurrence: None)
  Receive Date: 20080109
  Receipt Date: 20080109
  Transmission Date: 20080703
  Serious: Yes (Death)
  Sender: FDA-Public Use
  Company Number: None

PATIENT
  Age: 67 Year
  Sex: Female
  Weight: 88.4514 kg

DRUGS (7)
  1. SEROQUEL [Suspect]
     Indication: DEMENTIA ALZHEIMER'S TYPE
     Dosage: SEROQUEL  THREE TIMES DAILY  PO
     Route: 048
  2. SEROQUEL [Suspect]
     Indication: PSYCHOTIC DISORDER
     Dosage: SEROQUEL  THREE TIMES DAILY  PO
     Route: 048
  3. ACETAMINOPHEN AND HYDROCODONE BITARTRATE [Concomitant]
  4. LORAZEPAM [Concomitant]
  5. MAXALT [Concomitant]
  6. SKELAXIN [Concomitant]
  7. LEXAPRO [Concomitant]

REACTIONS (7)
  - BODY TEMPERATURE INCREASED [None]
  - HYPOTENSION [None]
  - MENTAL STATUS CHANGES [None]
  - NEUROLEPTIC MALIGNANT SYNDROME [None]
  - SEPSIS [None]
  - SEROTONIN SYNDROME [None]
  - SHOCK [None]
